FAERS Safety Report 12474930 (Version 1)
Quarter: 2016Q2

REPORT INFORMATION
  Report Type: Report from Study
  Country: US (occurrence: US)
  Receive Date: 20160617
  Receipt Date: 20160617
  Transmission Date: 20160815
  Serious: Yes (Disabling)
  Sender: FDA-Public Use
  Company Number: US-GILEAD-2016-0205774

PATIENT
  Age: 83 Year
  Sex: Female
  Weight: 74.38 kg

DRUGS (19)
  1. AMBRISENTAN [Suspect]
     Active Substance: AMBRISENTAN
     Indication: COR PULMONALE
     Dosage: 5 MG, QD
     Route: 048
     Dates: start: 20160127, end: 20160311
  2. ALPROZOLAM [Concomitant]
     Active Substance: ALPRAZOLAM
  3. PRADAXA [Concomitant]
     Active Substance: DABIGATRAN ETEXILATE MESYLATE
  4. LOVAZA [Concomitant]
     Active Substance: OMEGA-3-ACID ETHYL ESTERS
  5. LASIX [Concomitant]
     Active Substance: FUROSEMIDE
  6. PEPCID                             /00305201/ [Concomitant]
     Active Substance: ALUMINUM HYDROXIDE\MAGNESIUM CARBONATE
  7. PRILOSEC [Concomitant]
     Active Substance: OMEPRAZOLE MAGNESIUM
  8. ADEMPAS [Concomitant]
     Active Substance: RIOCIGUAT
  9. OXYGEN. [Concomitant]
     Active Substance: OXYGEN
  10. PRILOSEC [Concomitant]
     Active Substance: OMEPRAZOLE MAGNESIUM
  11. VITAMIN B12 [Concomitant]
     Active Substance: CYANOCOBALAMIN
  12. CRANBERRY                          /01512301/ [Concomitant]
     Active Substance: CRANBERRY
  13. LOSARTAN POTASSIUM. [Concomitant]
     Active Substance: LOSARTAN POTASSIUM
  14. ATENOLOL. [Concomitant]
     Active Substance: ATENOLOL
  15. VITAMIN D                          /00107901/ [Concomitant]
     Active Substance: ERGOCALCIFEROL
  16. ADCIRCA [Concomitant]
     Active Substance: TADALAFIL
  17. METFORMIN [Concomitant]
     Active Substance: METFORMIN HYDROCHLORIDE
  18. SIMVASTATIN. [Concomitant]
     Active Substance: SIMVASTATIN
  19. AMBRISENTAN [Suspect]
     Active Substance: AMBRISENTAN
     Indication: PULMONARY ARTERIAL HYPERTENSION

REACTIONS (5)
  - Hypoxia [Recovered/Resolved]
  - Peripheral swelling [Recovered/Resolved]
  - Nasal congestion [Recovered/Resolved]
  - Malaise [Not Recovered/Not Resolved]
  - Off label use [Recovered/Resolved]

NARRATIVE: CASE EVENT DATE: 20160127
